APPROVED DRUG PRODUCT: M.V.I. PEDIATRIC
Active Ingredient: ASCORBIC ACID; BIOTIN; CYANOCOBALAMIN; DEXPANTHENOL; ERGOCALCIFEROL; FOLIC ACID; NIACINAMIDE; PHYTONADIONE; PYRIDOXINE HYDROCHLORIDE; RIBOFLAVIN 5'-PHOSPHATE SODIUM; THIAMINE HYDROCHLORIDE; VITAMIN A; VITAMIN E
Strength: 80MG/VIAL;0.02MG/VIAL;0.001MG/VIAL;5MG/VIAL;0.01MG/VIAL;0.14MG/VIAL;17MG/VIAL;0.2MG/VIAL;1MG/VIAL;1.4MG/VIAL;EQ 1.2MG BASE/VIAL;0.7MG/VIAL;7MG/VIAL
Dosage Form/Route: FOR SOLUTION;INTRAVENOUS
Application: N018920 | Product #001
Applicant: HOSPIRA INC
Approved: Sep 21, 2000 | RLD: Yes | RS: No | Type: DISCN